FAERS Safety Report 17801803 (Version 2)
Quarter: 2020Q4

REPORT INFORMATION
  Report Type: Spontaneous
  Country: US (occurrence: US)
  Receive Date: 20200519
  Receipt Date: 20201020
  Transmission Date: 20210113
  Serious: No
  Sender: FDA-Public Use
  Company Number: US-SA-2020SA127263

PATIENT

DRUGS (2)
  1. DUPIXENT [Suspect]
     Active Substance: DUPILUMAB
     Indication: ASTHMA
  2. DUPIXENT [Suspect]
     Active Substance: DUPILUMAB
     Indication: NEURODERMATITIS
     Dosage: 300 MG, QOW
     Route: 058
     Dates: start: 20200501, end: 2020

REACTIONS (2)
  - Drug ineffective [Unknown]
  - Hypersensitivity [Unknown]

NARRATIVE: CASE EVENT DATE: 2020
